FAERS Safety Report 6170625-4 (Version None)
Quarter: 2009Q2

REPORT INFORMATION
  Report Type: 
  Country: None (occurrence: None)
  Receive Date: 20090428
  Receipt Date: 20090424
  Transmission Date: 20091009
  Serious: Yes (Death)
  Sender: FDA-Public Use
  Company Number: US-JNJFOC-20090404989

PATIENT
  Age: 65 Year
  Sex: Male

DRUGS (8)
  1. LEVAQUIN [Suspect]
     Indication: PROPHYLAXIS
     Route: 042
  2. PIPERACILLIN SODIUM AND TAZOBACTAM SODIUM [Suspect]
     Indication: PROPHYLAXIS
     Route: 065
  3. CLINDAMYCIN HCL [Suspect]
     Indication: PROPHYLAXIS
     Route: 065
  4. PANTAPRAZOLE [Concomitant]
     Route: 042
  5. DELTAPARIN [Concomitant]
     Route: 058
  6. DICLOFENAC SODIUM [Concomitant]
     Route: 054
  7. TRAMADOL HCL [Concomitant]
     Route: 042
  8. DEXTROSE [Concomitant]
     Route: 042

REACTIONS (1)
  - HYPOGLYCAEMIA [None]
